FAERS Safety Report 6930772-3 (Version None)
Quarter: 2010Q3

REPORT INFORMATION
  Report Type: 
  Country: None (occurrence: None)
  Receive Date: 20100817
  Receipt Date: 20100817
  Transmission Date: 20110219
  Serious: Yes (Hospitalization)
  Sender: FDA-Public Use
  Company Number: None

PATIENT
  Age: 41 Year
  Sex: Female
  Weight: 71.6683 kg

DRUGS (1)
  1. ATIVAN [Suspect]
     Indication: ANXIETY
     Dosage: 1MG PRN IV
     Route: 042
     Dates: start: 20060601, end: 20060601

REACTIONS (3)
  - AMNESIA [None]
  - CONFUSIONAL STATE [None]
  - MEMORY IMPAIRMENT [None]
